FAERS Safety Report 7224791-X (Version None)
Quarter: 2011Q1

REPORT INFORMATION
  Report Type: 
  Country: None (occurrence: None)
  Receive Date: 20110113
  Receipt Date: 20101231
  Transmission Date: 20110831
  Serious: Yes (Death)
  Sender: FDA-Public Use
  Company Number: US-CELGENEUS-163-21880-10100602

PATIENT
  Sex: Male

DRUGS (7)
  1. AMIODARONE [Concomitant]
     Route: 065
  2. WARFARIN [Concomitant]
     Route: 065
  3. METOPROLOL [Concomitant]
     Route: 065
  4. FLOMAX [Concomitant]
     Route: 065
  5. REVLIMID [Suspect]
     Indication: MULTIPLE MYELOMA
     Route: 048
     Dates: start: 20100901, end: 20100918
  6. NEURONTIN [Concomitant]
     Route: 065
  7. SIMVASTATIN [Concomitant]
     Route: 065

REACTIONS (1)
  - RESPIRATORY FAILURE [None]
